FAERS Safety Report 12386091 (Version 1)
Quarter: 2016Q2

REPORT INFORMATION
  Report Type: Other
  Country: GB (occurrence: GB)
  Receive Date: 20160519
  Receipt Date: 20160519
  Transmission Date: 20160815
  Serious: Yes (Other)
  Sender: FDA-Public Use
  Company Number: GB-WARNER CHILCOTT, LLC-1052476

PATIENT
  Age: 73 Year
  Sex: Female
  Weight: 70.18 kg

DRUGS (5)
  1. NITROFURANTOIN. [Concomitant]
     Active Substance: NITROFURANTOIN
     Dates: start: 20160425, end: 20160430
  2. SALBUTAMOL [Concomitant]
     Active Substance: ALBUTEROL
     Dates: start: 20160311, end: 20160408
  3. ACTONEL [Suspect]
     Active Substance: RISEDRONATE SODIUM
     Route: 048
     Dates: start: 20151020
  4. CLENIL MODULITE [Concomitant]
     Active Substance: BECLOMETHASONE DIPROPIONATE
     Dates: start: 20160311, end: 20160430
  5. HYDROXOCOBALAMIN [Concomitant]
     Active Substance: HYDROXOCOBALAMIN
     Dates: start: 20160415

REACTIONS (2)
  - Pernicious anaemia [Recovered/Resolved with Sequelae]
  - Vitamin B12 decreased [Unknown]
